FAERS Safety Report 4330322-4 (Version None)
Quarter: 2004Q2

REPORT INFORMATION
  Report Type: 
  Country: None (occurrence: None)
  Receive Date: 20040402
  Receipt Date: 20040324
  Transmission Date: 20050107
  Serious: Yes (Disabling)
  Sender: FDA-Public Use
  Company Number: NO-BRISTOL-MYERS SQUIBB COMPANY-12540712

PATIENT
  Age: 16 Year
  Sex: Female

DRUGS (3)
  1. PLATINOL [Suspect]
     Indication: OVARIAN CANCER
     Dosage: THERAPY DATES: AUG-1999 TO NOV-1999
     Dates: start: 19991101, end: 19991101
  2. ETOPOSIDE [Concomitant]
     Dates: start: 19990801, end: 19991101
  3. BLEOMYCIN [Concomitant]
     Dates: start: 19990801, end: 19991101

REACTIONS (2)
  - URETHRAL DISORDER [None]
  - URINARY INCONTINENCE [None]
